FAERS Safety Report 20456155 (Version 1)
Quarter: 2022Q1

REPORT INFORMATION
  Report Type: Report from Study
  Country: TN (occurrence: TN)
  Receive Date: 20220210
  Receipt Date: 20220210
  Transmission Date: 20220423
  Serious: Yes (Other)
  Sender: FDA-Public Use
  Company Number: TN-ABBVIE-22K-160-4272063-00

PATIENT
  Age: 73 Year
  Sex: Female

DRUGS (12)
  1. HUMIRA [Suspect]
     Active Substance: ADALIMUMAB
     Indication: Crohn^s disease
     Dosage: LOADING DOSE
     Route: 058
     Dates: start: 20190305, end: 20190305
  2. HUMIRA [Suspect]
     Active Substance: ADALIMUMAB
     Route: 058
     Dates: start: 20190319, end: 20190528
  3. HUMIRA [Suspect]
     Active Substance: ADALIMUMAB
     Route: 058
     Dates: start: 201907, end: 202001
  4. HUMIRA [Suspect]
     Active Substance: ADALIMUMAB
     Route: 058
     Dates: start: 20200408, end: 202007
  5. HUMIRA [Suspect]
     Active Substance: ADALIMUMAB
     Route: 058
  6. AMLODIPINE BESYLATE [Concomitant]
     Active Substance: AMLODIPINE BESYLATE
     Indication: Hypertension
     Route: 048
  7. VITAMIN D [Concomitant]
     Active Substance: VITAMIN D NOS
     Indication: Vitamin D deficiency
     Dosage: AS REQUIRED
     Dates: start: 201905
  8. CALCIUM [Concomitant]
     Active Substance: CALCIUM
     Indication: Calcium deficiency
     Route: 048
     Dates: start: 201905, end: 202005
  9. PRAZOSIN [Concomitant]
     Active Substance: PRAZOSIN
     Indication: Hypertension
     Dosage: IN THE EVENING
     Route: 048
  10. EPOMAX [Concomitant]
     Indication: Anaemia
     Dosage: 1 INJECTION/2
  11. PURINOL [Concomitant]
     Indication: Gout
     Dosage: 1 TAB/2
     Route: 048
  12. NEBILUS [Concomitant]
     Indication: Cardiac disorder
     Route: 048

REACTIONS (2)
  - Renal failure [Not Recovered/Not Resolved]
  - Gout [Not Recovered/Not Resolved]

NARRATIVE: CASE EVENT DATE: 20190101
